FAERS Safety Report 12560680 (Version 2)
Quarter: 2016Q3

REPORT INFORMATION
  Report Type: Spontaneous
  Country: US (occurrence: US)
  Receive Date: 20160715
  Receipt Date: 20160721
  Transmission Date: 20161109
  Serious: No
  Sender: FDA-Public Use
  Company Number: US-HORIZON-VIM-0161-2016

PATIENT
  Age: 47 Year
  Sex: Female

DRUGS (5)
  1. NEXIUM [Concomitant]
     Active Substance: ESOMEPRAZOLE MAGNESIUM
  2. 12.5 SYNTROID [Concomitant]
     Dosage: DAILY
  3. VIMOVO [Suspect]
     Active Substance: ESOMEPRAZOLE MAGNESIUM\NAPROXEN
     Indication: ARTHRALGIA
     Dosage: ONCE EVERY 3-4 DAYS
  4. WELLBUTRIN [Concomitant]
     Active Substance: BUPROPION HYDROCHLORIDE
     Indication: ANGER
     Dosage: 150 MG DAILY
  5. ESTROGEN GEL 0,1% [Concomitant]
     Dosage: DAILY

REACTIONS (3)
  - Abdominal pain upper [Unknown]
  - Intentional product misuse [Unknown]
  - Off label use [Unknown]
